FAERS Safety Report 12431675 (Version 2)
Quarter: 2016Q2

REPORT INFORMATION
  Report Type: Spontaneous
  Country: JP (occurrence: JP)
  Receive Date: 20160603
  Receipt Date: 20160623
  Transmission Date: 20160815
  Serious: Yes (Hospitalization)
  Sender: FDA-Public Use
  Company Number: JP-TAKEDA-2016TJP010937

PATIENT
  Age: 85 Year
  Sex: Male
  Weight: 39 kg

DRUGS (11)
  1. AMANTADINE HYDROCHLORIDE. [Concomitant]
     Active Substance: AMANTADINE HYDROCHLORIDE
     Indication: DEMENTIA
     Dosage: 50 MG, BID
     Route: 048
  2. NESINA [Suspect]
     Active Substance: ALOGLIPTIN BENZOATE
     Dosage: 25 MG, QD
     Route: 048
     Dates: start: 20160510, end: 20160527
  3. FAMOTIDINE. [Concomitant]
     Active Substance: FAMOTIDINE
     Indication: PRODUCT USED FOR UNKNOWN INDICATION
     Dosage: 10 MG, BID
     Route: 048
  4. LANSOPRAZOLE. [Concomitant]
     Active Substance: LANSOPRAZOLE
     Indication: PROPHYLAXIS
     Dosage: 15 MG, QD
     Route: 048
     Dates: start: 20160314
  5. SUREPOST [Concomitant]
     Active Substance: REPAGLINIDE
     Dosage: 1 MG, UNK
     Route: 048
     Dates: start: 20160323, end: 20160328
  6. SUREPOST [Concomitant]
     Active Substance: REPAGLINIDE
     Dosage: 0.5 MG, BID
     Route: 048
     Dates: start: 20160406, end: 20160410
  7. NESINA [Suspect]
     Active Substance: ALOGLIPTIN BENZOATE
     Indication: DIABETES MELLITUS
     Dosage: 25 MG, QD
     Route: 048
     Dates: end: 20160427
  8. SUREPOST [Concomitant]
     Active Substance: REPAGLINIDE
     Dosage: 0.75 MG, BID
     Route: 048
     Dates: start: 20160411
  9. SUREPOST [Concomitant]
     Active Substance: REPAGLINIDE
     Indication: DIABETES MELLITUS
     Dosage: 0.25 MG, TID
     Route: 048
     Dates: start: 20160319, end: 20160322
  10. ALENDRONATE [Concomitant]
     Active Substance: ALENDRONATE SODIUM
     Indication: PROPHYLAXIS
     Dosage: 35 MG, 1/WEEK
     Route: 048
     Dates: start: 20160314
  11. SUREPOST [Concomitant]
     Active Substance: REPAGLINIDE
     Dosage: 0.75 MG, UNK
     Route: 048
     Dates: start: 20160329, end: 20160405

REACTIONS (1)
  - Pemphigoid [Recovering/Resolving]

NARRATIVE: CASE EVENT DATE: 20160229
